FAERS Safety Report 6823168-6 (Version None)
Quarter: 2010Q3

REPORT INFORMATION
  Report Type: 
  Country: None (occurrence: None)
  Receive Date: 20100708
  Receipt Date: 20100625
  Transmission Date: 20110219
  Serious: Yes (Hospitalization, Other)
  Sender: FDA-Public Use
  Company Number: DE-WATSON-2010-06312

PATIENT
  Sex: Male
  Weight: 70 kg

DRUGS (1)
  1. ALENDRONATE SODIUM [Suspect]
     Indication: OSTEOPOROSIS
     Dosage: 70 MG, 1/WEEK
     Route: 048
     Dates: start: 20091101, end: 20091201

REACTIONS (7)
  - C-REACTIVE PROTEIN INCREASED [None]
  - MYALGIA [None]
  - NAUSEA [None]
  - POLYARTHRITIS [None]
  - SCLEROTHERAPY [None]
  - VERTIGO [None]
  - WEIGHT DECREASED [None]
